FAERS Safety Report 19684565 (Version 2)
Quarter: 2024Q4

REPORT INFORMATION
  Report Type: Report from Study
  Country: KR (occurrence: KR)
  Receive Date: 20210811
  Receipt Date: 20241128
  Transmission Date: 20250115
  Serious: Yes (Hospitalization, Other)
  Sender: GLAXOSMITHKLINE
  Company Number: KR-TAKEDA-2021TJP067539

PATIENT
  Age: 61 Year
  Sex: Female
  Weight: 76.5 kg

DRUGS (12)
  1. NIRAPARIB [Suspect]
     Active Substance: NIRAPARIB
     Indication: Recurrent cancer
     Dosage: 200 MG, QD
     Route: 048
     Dates: start: 20210503, end: 20210620
  2. NIRAPARIB [Suspect]
     Active Substance: NIRAPARIB
     Indication: Malignant peritoneal neoplasm
     Dosage: 200 MG, QD
     Route: 048
     Dates: start: 20210728, end: 20210820
  3. NIRAPARIB [Suspect]
     Active Substance: NIRAPARIB
     Indication: Fallopian tube cancer
     Dosage: 100 MG, QD
     Route: 048
     Dates: start: 20210915, end: 20220715
  4. NIRAPARIB [Suspect]
     Active Substance: NIRAPARIB
     Dosage: 200 MG, QD
     Route: 048
     Dates: start: 20220716, end: 20220920
  5. NIRAPARIB [Suspect]
     Active Substance: NIRAPARIB
     Dosage: 100 MG, QD
     Route: 048
     Dates: start: 20220921, end: 20221221
  6. NEURONTIN [Concomitant]
     Active Substance: GABAPENTIN
     Indication: Prophylaxis
     Dosage: 300 MG, BID
     Route: 048
     Dates: start: 20201205, end: 20210620
  7. DONG A GASTER [Concomitant]
     Indication: Prophylaxis
     Dosage: 20 MG, BID
     Route: 048
     Dates: start: 20201205, end: 20210620
  8. MAGNESIUM OXIDE [Concomitant]
     Active Substance: MAGNESIUM OXIDE
     Indication: Prophylaxis
     Dosage: 500 MG, BID
     Route: 048
     Dates: start: 20201205, end: 20210620
  9. ACETAMINOPHEN [Concomitant]
     Active Substance: ACETAMINOPHEN
     Indication: Prophylaxis
     Dosage: 650 MG, PRN
     Route: 048
     Dates: start: 20201205, end: 20210620
  10. LEVAMLODIPINE\TELMISARTAN [Concomitant]
     Active Substance: LEVAMLODIPINE\TELMISARTAN
     Indication: Hypertension
     Dosage: UNK, QD
     Route: 048
     Dates: start: 20201127, end: 20210620
  11. LENOGRASTIM [Concomitant]
     Active Substance: LENOGRASTIM
     Indication: Pancytopenia
     Dosage: UNK UNK, QD
     Route: 042
     Dates: start: 20210827, end: 20210830
  12. MAXIPIME [Concomitant]
     Active Substance: CEFEPIME HYDROCHLORIDE
     Indication: Pancytopenia
     Dosage: UNK UNK, TID
     Route: 042
     Dates: start: 20210826, end: 20210831

REACTIONS (2)
  - Gastrointestinal necrosis [Recovered/Resolved]
  - Perforation [Recovered/Resolved]

NARRATIVE: CASE EVENT DATE: 20210620
